FAERS Safety Report 21091994 (Version 2)
Quarter: 2024Q2

REPORT INFORMATION
  Report Type: Spontaneous
  Country: GB (occurrence: GB)
  Receive Date: 20220718
  Receipt Date: 20240523
  Transmission Date: 20240716
  Serious: Yes (Other)
  Sender: FDA-Public Use
  Company Number: GB-TEVA-2022-GB-2055898

PATIENT
  Age: 28 Year
  Sex: Male

DRUGS (5)
  1. PREDNISOLONE [Suspect]
     Active Substance: PREDNISOLONE
     Indication: Deafness
     Dosage: DOSAGE TEXT: ADMINISTERED MULTIPLE SHORT COURSES.
     Route: 065
  2. PREDNISOLONE [Suspect]
     Active Substance: PREDNISOLONE
     Indication: Deafness
     Dosage: DOSAGE TEXT: ADMINISTERED 50 TO 60MG ON A TAPERING DOSE OVER 7 TO 14 DAYS.
     Route: 048
  3. PREDNISOLONE [Suspect]
     Active Substance: PREDNISOLONE
     Indication: Deafness
     Route: 048
  4. PREDNISOLONE [Suspect]
     Active Substance: PREDNISOLONE
     Indication: Deafness
     Dosage: DOSAGE TEXT: ADDITIONAL INFO: ROUTE: INTRATYMPANIC
     Route: 065
  5. AZATHIOPRINE [Concomitant]
     Active Substance: AZATHIOPRINE
     Indication: Colitis ulcerative
     Route: 065

REACTIONS (2)
  - Deafness [Unknown]
  - Rebound effect [Unknown]
